FAERS Safety Report 7679566-4 (Version None)
Quarter: 2011Q3

REPORT INFORMATION
  Report Type: 
  Country: None (occurrence: None)
  Receive Date: 20110812
  Receipt Date: 20110810
  Transmission Date: 20111222
  Serious: Yes (Death, Hospitalization, Other)
  Sender: FDA-Public Use
  Company Number: US-BRISTOL-MYERS SQUIBB COMPANY-15898604

PATIENT
  Age: 67 Year
  Sex: Male
  Weight: 78 kg

DRUGS (3)
  1. CISPLATIN [Suspect]
     Indication: OESOPHAGEAL ADENOCARCINOMA
     Dosage: DOSAGE: 25MG/M2 ON DAY 1,8,15,22,29,36. LAST ADMIN: 05JUL2011.
     Dates: start: 20110606
  2. ERBITUX [Suspect]
     Indication: OESOPHAGEAL ADENOCARCINOMA
     Dosage: DOSAGE: 400MG/MS DAY1, 250MG/M2 DAYS 8,15,22,29,36. LAST ADMIN: 05JUL2011.
     Dates: start: 20110606
  3. TAXOL [Suspect]
     Indication: OESOPHAGEAL ADENOCARCINOMA
     Dosage: DOSAGE: 50MG/M2 ON DAY 1,8,15,22,29,36. LAST ADMIN: 05JUL2011.
     Dates: start: 20110606

REACTIONS (5)
  - EMBOLISM [None]
  - HYPONATRAEMIA [None]
  - NEUTROPHIL COUNT DECREASED [None]
  - PNEUMONIA ASPIRATION [None]
  - PLATELET COUNT DECREASED [None]
